FAERS Safety Report 7434215-5 (Version None)
Quarter: 2011Q2

REPORT INFORMATION
  Report Type: 
  Country: None (occurrence: None)
  Receive Date: 20110425
  Receipt Date: 20110420
  Transmission Date: 20111010
  Serious: No
  Sender: FDA-Public Use
  Company Number: US-PFIZER INC-2011086744

PATIENT
  Sex: Female

DRUGS (3)
  1. POTASSIUM [Concomitant]
     Dosage: UNK
  2. NIFEDIPINE [Suspect]
     Dosage: 60 MG, DAILY
     Route: 048
     Dates: start: 20110419
  3. LISINOPRIL AND HYDROCHLOROTHIAZIDE [Concomitant]
     Dosage: UNK

REACTIONS (1)
  - PRODUCT TASTE ABNORMAL [None]
